FAERS Safety Report 9412325 (Version 3)
Quarter: 2014Q1

REPORT INFORMATION
  Report Type: Report from Study
  Country: BR (occurrence: BR)
  Receive Date: 20130722
  Receipt Date: 20140108
  Transmission Date: 20141002
  Serious: Yes (Other)
  Sender: FDA-Public Use
  Company Number: BR-ROCHE-1249531

PATIENT
  Sex: Male
  Weight: 70 kg

DRUGS (12)
  1. PEGASYS [Suspect]
     Indication: HEPATITIS C
     Route: 065
     Dates: start: 2009, end: 2011
  2. INTERFERON ALFA-2A [Suspect]
     Indication: HEPATITIS C
     Route: 065
     Dates: start: 2003, end: 2004
  3. INTERFERON ALFA-2A [Suspect]
     Route: 065
     Dates: start: 2004, end: 2006
  4. INTERFERON ALFA-2A [Suspect]
     Route: 065
     Dates: start: 2008, end: 2009
  5. RANITIDINE [Concomitant]
     Indication: GASTRIC DISORDER
  6. ROCALTROL [Concomitant]
     Indication: BONE DISORDER
     Route: 065
  7. RENAGEL [Concomitant]
     Dosage: 3 IN THE MORMING, 3 IN THE EVENINGS AND 3 PRIOR TO SLEEP.
     Route: 065
  8. FOLIC ACID [Concomitant]
     Indication: BLOOD DISORDER
     Dosage: ONE IN THE MORNINGS AND ONE IN THE EVENINGS
     Route: 065
  9. NORIPURUM [Concomitant]
     Indication: BLOOD DISORDER
     Dosage: LATER DIALYSIS SESSIONS
     Route: 065
  10. OMEPRAZOLE [Concomitant]
     Indication: GASTRIC DISORDER
  11. DIAZEPAM [Concomitant]
     Indication: SLEEP DISORDER THERAPY
  12. TYLENOL [Concomitant]

REACTIONS (4)
  - Drug ineffective [Unknown]
  - Depression [Unknown]
  - Viral load increased [Unknown]
  - Renal failure [Not Recovered/Not Resolved]
